FAERS Safety Report 8826115 (Version 1)
Quarter: 2012Q4

REPORT INFORMATION
  Report Type: 
  Country: AR (occurrence: AR)
  Receive Date: 20121005
  Receipt Date: 20121005
  Transmission Date: 20130627
  Serious: Yes (Hospitalization)
  Sender: FDA-Public Use
  Company Number: PHHO2012AR013654

PATIENT
  Age: 61 Year
  Sex: Female
  Weight: 80 kg

DRUGS (7)
  1. BLINDED AFINITOR [Suspect]
     Indication: BREAST CANCER METASTATIC
     Dosage: code not broken
     Route: 048
     Dates: start: 20120601, end: 20120918
  2. BLINDED NO TREATMENT RECEIVED [Suspect]
     Indication: BREAST CANCER METASTATIC
     Dosage: code not broken
     Route: 048
     Dates: start: 20120601, end: 20120918
  3. BLINDED PLACEBO [Suspect]
     Indication: BREAST CANCER METASTATIC
     Dosage: code not broken
     Route: 048
     Dates: start: 20120601, end: 20120918
  4. COMPARATOR TRASTUZUMAB [Suspect]
     Indication: BREAST CANCER METASTATIC
     Dosage: 2 mg/kg, UNK
     Dates: start: 20120601, end: 20120914
  5. COMPARATOR TRASTUZUMAB [Suspect]
     Dosage: 2 mg/kg, UNK
     Dates: start: 20120928
  6. VINORELBINE [Suspect]
     Indication: BREAST CANCER METASTATIC
     Dosage: 25 mg/m2, UNK
     Dates: start: 20120601, end: 20120914
  7. VINORELBINE [Suspect]
     Dosage: 25 mg/m2, UNK
     Dates: start: 20120928

REACTIONS (1)
  - Pneumonitis [Recovering/Resolving]
